FAERS Safety Report 8547067-7 (Version None)
Quarter: 2012Q3

REPORT INFORMATION
  Report Type: 
  Country: None (occurrence: None)
  Receive Date: 20120727
  Receipt Date: 20120213
  Transmission Date: 20120928
  Serious: No
  Sender: FDA-Public Use
  Company Number: US-ASTRAZENECA-2012SE09600

PATIENT
  Age: 59 Year
  Sex: Female
  Weight: 102.1 kg

DRUGS (9)
  1. PAIN MEDICATIONS [Concomitant]
     Indication: PAIN
  2. PROZAC [Concomitant]
     Indication: MENTAL DISORDER
  3. SEROQUEL [Suspect]
     Route: 048
  4. POTASSIUM PILLS [Concomitant]
     Indication: BLOOD POTASSIUM DECREASED
  5. FLUID PILLS [Concomitant]
     Indication: FLUID IMBALANCE
  6. SEROQUEL [Suspect]
     Indication: RELAXATION THERAPY
     Route: 048
  7. SEROQUEL [Suspect]
     Route: 048
  8. SEROQUEL [Suspect]
     Indication: DEPRESSION
     Route: 048
  9. WELLBUTRIN [Concomitant]
     Indication: MENTAL DISORDER

REACTIONS (8)
  - ATTENTION DEFICIT/HYPERACTIVITY DISORDER [None]
  - CROHN'S DISEASE [None]
  - SEASONAL ALLERGY [None]
  - WEIGHT INCREASED [None]
  - FIBROMYALGIA [None]
  - ARTHRITIS [None]
  - WEIGHT DECREASED [None]
  - OFF LABEL USE [None]
